FAERS Safety Report 15671633 (Version 3)
Quarter: 2018Q4

REPORT INFORMATION
  Report Type: Report from Study
  Country: US (occurrence: US)
  Receive Date: 20181129
  Receipt Date: 20181221
  Transmission Date: 20190205
  Serious: Yes (Other)
  Sender: FDA-Public Use
  Company Number: US-TESARO-US-2018TSO04136

PATIENT
  Sex: Female
  Weight: 65 kg

DRUGS (2)
  1. ZEJULA [Suspect]
     Active Substance: NIRAPARIB
     Indication: OVARIAN CANCER
     Dosage: 300 MG, UNK
     Route: 048
     Dates: start: 20171122
  2. ZEJULA [Suspect]
     Active Substance: NIRAPARIB
     Dosage: 200 MG, QHS
     Route: 048
     Dates: start: 20171227

REACTIONS (7)
  - Vulvovaginal pain [Recovered/Resolved]
  - Urinary tract infection [Recovered/Resolved]
  - Stomatitis [Recovering/Resolving]
  - Cytopenia [Unknown]
  - Dysuria [Recovered/Resolved]
  - Vaginal haemorrhage [Not Recovered/Not Resolved]
  - Blood urine present [Unknown]
